FAERS Safety Report 11661280 (Version 2)
Quarter: 2015Q4

REPORT INFORMATION
  Report Type: Other
  Country: US (occurrence: US)
  Receive Date: 20151026
  Receipt Date: 20151103
  Transmission Date: 20160304
  Serious: Yes (Hospitalization)
  Sender: FDA-Public Use
  Company Number: US-UNITED THERAPEUTICS-UNT-2015-013195

PATIENT
  Age: 56 Year
  Sex: Female
  Weight: 52.61 kg

DRUGS (1)
  1. REMODULIN [Suspect]
     Active Substance: TREPROSTINIL
     Indication: PULMONARY HYPERTENSION
     Dosage: 0.0695 ?G/KG, CONTINUING
     Route: 041
     Dates: start: 20101001

REACTIONS (3)
  - Medical device complication [Unknown]
  - Fungal infection [Unknown]
  - Injection site infection [Unknown]

NARRATIVE: CASE EVENT DATE: 20151006
